FAERS Safety Report 8476340-6 (Version None)
Quarter: 2012Q2

REPORT INFORMATION
  Report Type: 
  Country: None (occurrence: None)
  Receive Date: 20120622
  Receipt Date: 20120608
  Transmission Date: 20120825
  Serious: Yes (Other)
  Sender: FDA-Public Use
  Company Number: FK201201680

PATIENT
  Age: 55 Year
  Sex: Female

DRUGS (2)
  1. CAPECITABINE [Suspect]
     Indication: RECTAL CANCER
     Dosage: 1650 MG, X 2/DAY X 14 DAYS
  2. OXALIPLATIN [Suspect]
     Indication: RECTAL CANCER
     Dosage: INTRAVENOUS (NOT OTHERWISE SPECIFIED)
     Route: 042

REACTIONS (12)
  - DEMYELINATING POLYNEUROPATHY [None]
  - HYPOAESTHESIA [None]
  - MYOPATHY TOXIC [None]
  - LEFT VENTRICULAR FAILURE [None]
  - PERIPHERAL SENSORY NEUROPATHY [None]
  - PARAPLEGIA [None]
  - AREFLEXIA [None]
  - DYSAESTHESIA [None]
  - FATIGUE [None]
  - DECREASED APPETITE [None]
  - CARDIOTOXICITY [None]
  - ASTHENIA [None]
